FAERS Safety Report 20065934 (Version 2)
Quarter: 2022Q1

REPORT INFORMATION
  Report Type: Spontaneous
  Country: US (occurrence: US)
  Receive Date: 20211114
  Receipt Date: 20220111
  Transmission Date: 20220423
  Serious: Yes (Death, Other)
  Sender: FDA-Public Use
  Company Number: US-REGENERON PHARMACEUTICALS, INC.-2021-100057

PATIENT

DRUGS (1)
  1. EYLEA [Suspect]
     Active Substance: AFLIBERCEPT
     Indication: Diabetic retinal oedema
     Dosage: 0.5 ML, 8 WEEKS, BOTH EYES (OD AND OS)
     Route: 031
     Dates: start: 2016, end: 20210907

REACTIONS (1)
  - Death [Fatal]

NARRATIVE: CASE EVENT DATE: 20211030
